FAERS Safety Report 4918039-6 (Version None)
Quarter: 2006Q1

REPORT INFORMATION
  Report Type: 
  Country: None (occurrence: None)
  Receive Date: 20060221
  Receipt Date: 20051115
  Transmission Date: 20060701
  Serious: Yes (Hospitalization, Disabling)
  Sender: FDA-Public Use
  Company Number: US-MERCK-0511USA03059

PATIENT
  Age: 66 Year
  Sex: Male
  Weight: 82 kg

DRUGS (3)
  1. VIOXX [Suspect]
     Indication: BRACHYTHERAPY
     Route: 048
     Dates: start: 20010601, end: 20011001
  2. HYZAAR [Concomitant]
     Route: 065
  3. ASPIRIN [Concomitant]
     Route: 065

REACTIONS (8)
  - BRADYCARDIA [None]
  - CEREBRAL HYPOPERFUSION [None]
  - CEREBROVASCULAR ACCIDENT [None]
  - COLONIC POLYP [None]
  - DIVERTICULUM [None]
  - GASTROENTERITIS VIRAL [None]
  - GASTROINTESTINAL HAEMORRHAGE [None]
  - TRANSIENT ISCHAEMIC ATTACK [None]
